FAERS Safety Report 18365150 (Version 1)
Quarter: 2020Q4

REPORT INFORMATION
  Report Type: Report from Study
  Country: US (occurrence: US)
  Receive Date: 20201009
  Receipt Date: 20201009
  Transmission Date: 20210114
  Serious: No
  Sender: FDA-Public Use
  Company Number: US-TERSERA THERAPEUTICS LLC-US2020GSK080876

PATIENT

DRUGS (17)
  1. MONTELUKAST SODIUM. [Concomitant]
     Active Substance: MONTELUKAST SODIUM
     Dosage: 10 MG
  2. ONDANSETRON [Concomitant]
     Active Substance: ONDANSETRON
     Dosage: 8 MG
  3. ROLAPITANT HYDROCHLORIDE [Suspect]
     Active Substance: ROLAPITANT
     Dosage: UNK
     Route: 048
  4. OLANZAPINE. [Concomitant]
     Active Substance: OLANZAPINE
     Dosage: 5 MG
  5. METOPROLOL SUCCINATE SR [Concomitant]
     Active Substance: METOPROLOL SUCCINATE
     Dosage: 50 MG
  6. ANUSOL-HC [Concomitant]
     Active Substance: HYDROCORTISONE
     Dosage: 25 MG
  7. LASIX [Concomitant]
     Active Substance: FUROSEMIDE
     Dosage: 40 MG
  8. POTASSIUM [Concomitant]
     Active Substance: POTASSIUM
     Dosage: 99 MG
  9. ELIQUIS [Concomitant]
     Active Substance: APIXABAN
     Dosage: 5 MG
  10. PREDNISONE. [Concomitant]
     Active Substance: PREDNISONE
     Dosage: 10 MG
  11. TRAMADOL. [Concomitant]
     Active Substance: TRAMADOL
     Dosage: 50 MG
  12. ACYCLOVIR. [Concomitant]
     Active Substance: ACYCLOVIR
     Dosage: 400 MG
  13. LIPITOR [Concomitant]
     Active Substance: ATORVASTATIN CALCIUM
     Dosage: UNK
  14. XPOVIO [Concomitant]
     Active Substance: SELINEXOR
     Dosage: UNK TWICE WEEKLY
     Dates: start: 20191206
  15. DEXAMETHASONE. [Concomitant]
     Active Substance: DEXAMETHASONE
     Dosage: 4 MG
  16. SANCUSO [Concomitant]
     Active Substance: GRANISETRON
     Dosage: 3.1 MG/24 HR
  17. TELMISARTAN. [Concomitant]
     Active Substance: TELMISARTAN
     Dosage: 40 MG

REACTIONS (1)
  - Weight decreased [Unknown]

NARRATIVE: CASE EVENT DATE: 20200511
